FAERS Safety Report 9473253 (Version 1)
Quarter: 2013Q3

REPORT INFORMATION
  Report Type: Spontaneous
  Country: CA (occurrence: CA)
  Receive Date: 20130823
  Receipt Date: 20130823
  Transmission Date: 20140515
  Serious: Yes (Hospitalization, Other)
  Sender: FDA-Public Use
  Company Number: CA-BAYER-2013-101308

PATIENT
  Age: 62 Week
  Sex: Female

DRUGS (6)
  1. ASPIRIN [Suspect]
     Route: 065
  2. LANTUS [Suspect]
     Dosage: 30 IU, UNK
     Route: 058
  3. METFORMIN [Suspect]
     Dosage: 2000 MG, UNK
     Route: 048
  4. NOVORAPID [Suspect]
     Dosage: 30 IU, UNK
     Route: 058
  5. PLAVIX [Suspect]
     Route: 048
  6. HEPARIN SODIUM [Concomitant]

REACTIONS (3)
  - General physical health deterioration [Unknown]
  - Hepatic neoplasm [Unknown]
  - Upper gastrointestinal haemorrhage [Unknown]
